FAERS Safety Report 18699134 (Version 1)
Quarter: 2021Q1

REPORT INFORMATION
  Report Type: Spontaneous
  Country: DE (occurrence: DE)
  Receive Date: 20210105
  Receipt Date: 20210105
  Transmission Date: 20210419
  Serious: Yes (Hospitalization, Other)
  Sender: FDA-Public Use
  Company Number: DE-SUN PHARMACEUTICAL INDUSTRIES LTD-2020RR-274111

PATIENT
  Age: 38 Year
  Sex: Female
  Weight: 167 kg

DRUGS (5)
  1. FYREMADEL [Suspect]
     Active Substance: GANIRELIX ACETATE
     Indication: ASSISTED REPRODUCTIVE TECHNOLOGY
     Dosage: FROM THE 7TH DAY OF STIMULATION
     Route: 065
     Dates: start: 20201209, end: 20201211
  2. PROGESTERON [Concomitant]
     Active Substance: PROGESTERONE
     Indication: PRODUCT USED FOR UNKNOWN INDICATION
     Dosage: UNK
     Route: 065
     Dates: end: 20201209
  3. AGNUS CASTUS [Concomitant]
     Indication: PRODUCT USED FOR UNKNOWN INDICATION
     Dosage: UNK
     Route: 065
  4. GONAL?F [Suspect]
     Active Substance: FOLLITROPIN
     Indication: ASSISTED REPRODUCTIVE TECHNOLOGY
     Dosage: 125?150 IE, UNK
     Route: 065
  5. L?THYROXIN [Concomitant]
     Active Substance: LEVOTHYROXINE SODIUM
     Indication: PRODUCT USED FOR UNKNOWN INDICATION
     Dosage: UNK
     Route: 065

REACTIONS (6)
  - Ovarian hyperstimulation syndrome [Unknown]
  - Ascites [Unknown]
  - Hypotonia [Unknown]
  - Dyspnoea [Unknown]
  - Pelvic pain [Unknown]
  - Pleural effusion [Unknown]

NARRATIVE: CASE EVENT DATE: 20201209
